FAERS Safety Report 21170718 (Version 1)
Quarter: 2022Q3

REPORT INFORMATION
  Report Type: Report from Study
  Country: CO (occurrence: CO)
  Receive Date: 20220804
  Receipt Date: 20220804
  Transmission Date: 20221026
  Serious: Yes (Death, Hospitalization)
  Sender: FDA-Public Use
  Company Number: CO-ASTPRD-AER-2022-014726

PATIENT
  Age: 64 Year
  Sex: Male

DRUGS (1)
  1. TACROLIMUS [Suspect]
     Active Substance: TACROLIMUS
     Indication: Renal transplant
     Dosage: 6 MG, ONCE DAILY (5 MG + 1 MG)
     Route: 048
     Dates: start: 20220306

REACTIONS (3)
  - COVID-19 [Fatal]
  - Fracture [Unknown]
  - Fall [Unknown]
